FAERS Safety Report 17352080 (Version 2)
Quarter: 2020Q1

REPORT INFORMATION
  Report Type: Spontaneous
  Country: US (occurrence: US)
  Receive Date: 20200130
  Receipt Date: 20200328
  Transmission Date: 20200409
  Serious: Yes (Life-Threatening, Hospitalization)
  Sender: FDA-Public Use
  Company Number: US-TEVA-2020-US-1175489

PATIENT
  Age: 38 Year
  Sex: Female

DRUGS (3)
  1. ESMOLOL [Suspect]
     Active Substance: ESMOLOL HYDROCHLORIDE
     Indication: BASEDOW^S DISEASE
     Route: 065
  2. PROPRANOLOL [Suspect]
     Active Substance: PROPRANOLOL HYDROCHLORIDE
     Indication: BASEDOW^S DISEASE
     Route: 065
  3. PROPYLTHIOURACIL. [Suspect]
     Active Substance: PROPYLTHIOURACIL
     Indication: BASEDOW^S DISEASE
     Route: 065

REACTIONS (3)
  - Paradoxical drug reaction [Recovering/Resolving]
  - Cardiac failure high output [Recovering/Resolving]
  - Hyperthyroidism [Recovering/Resolving]
